FAERS Safety Report 9813229 (Version 6)
Quarter: 2014Q4

REPORT INFORMATION
  Report Type: Spontaneous
  Country: US (occurrence: US)
  Receive Date: 20140113
  Receipt Date: 20141001
  Transmission Date: 20150529
  Serious: Yes (Disabling, Other)
  Sender: FDA-Public Use
  Company Number: US-009507513-1401USA002079

PATIENT
  Sex: Female
  Weight: 49.89 kg

DRUGS (4)
  1. FOSAMAX PLUS D [Suspect]
     Active Substance: ALENDRONATE SODIUM\CHOLECALCIFEROL
     Indication: OSTEOPOROSIS
     Dosage: 70 MG/2800 MG, QW
     Route: 048
  2. ALENDRONATE SODIUM. [Suspect]
     Active Substance: ALENDRONATE SODIUM
     Dosage: 70 MG, UNK
  3. FOSAMAX [Suspect]
     Active Substance: ALENDRONATE SODIUM
     Indication: OSTEOPOROSIS
     Dosage: 70 MG, QW
     Route: 048
     Dates: start: 200505, end: 2011
  4. FOSAMAX [Suspect]
     Active Substance: ALENDRONATE SODIUM
     Dosage: 10 MG, QD
     Route: 048

REACTIONS (26)
  - Fistula [Unknown]
  - Herpes zoster [Unknown]
  - Intervertebral disc protrusion [Unknown]
  - Electrocardiogram ST-T change [Unknown]
  - Carotid artery disease [Unknown]
  - Hypertensive heart disease [Unknown]
  - Oedema peripheral [Unknown]
  - Spinal compression fracture [Unknown]
  - Bradycardia [Unknown]
  - Arthralgia [Unknown]
  - Erythema [Unknown]
  - Osteonecrosis of jaw [Not Recovered/Not Resolved]
  - Intervertebral disc disorder [Unknown]
  - Dizziness [Unknown]
  - Wound dehiscence [Unknown]
  - Jaw operation [Unknown]
  - Osteopenia [Unknown]
  - Peripheral arterial occlusive disease [Unknown]
  - Hypertension [Unknown]
  - Abdominal pain upper [Unknown]
  - Cardiac murmur [Unknown]
  - Dyspnoea [Unknown]
  - Abscess [Unknown]
  - Spinal osteoarthritis [Unknown]
  - Gastrooesophageal reflux disease [Unknown]
  - Pain in jaw [Unknown]

NARRATIVE: CASE EVENT DATE: 20050605
